FAERS Safety Report 10036300 (Version 2)
Quarter: 2014Q2

REPORT INFORMATION
  Report Type: Spontaneous
  Country: DE (occurrence: DE)
  Receive Date: 20140325
  Receipt Date: 20140417
  Transmission Date: 20141212
  Serious: Yes (Death, Hospitalization)
  Sender: FDA-Public Use
  Company Number: DE-B.I. PHARMACEUTICALS,INC./RIDGEFIELD-2014-BI-12830DE

PATIENT
  Age: 95 Year
  Sex: Female
  Weight: 63 kg

DRUGS (6)
  1. PRADAXA [Suspect]
     Indication: ATRIAL FIBRILLATION
     Dosage: 220 MG
     Route: 048
     Dates: start: 20131126, end: 20131128
  2. PRADAXA [Suspect]
     Indication: PERIPHERAL EMBOLISM
  3. NOVAMINSULFON [Concomitant]
     Indication: MUSCULOSKELETAL PAIN
     Dosage: 2000 MG
     Route: 048
     Dates: start: 20131119, end: 20131128
  4. RAMIPRIL [Concomitant]
     Dosage: 2.5 MG
     Route: 048
  5. ACTRAPID [Concomitant]
     Dosage: DAILY DOSE: INTAKE AFTER BLOOD SUGAR
     Route: 058
  6. DIGIMERCK [Concomitant]
     Dosage: DAILY DOSE: 0.05
     Route: 048

REACTIONS (6)
  - Haemorrhage [Fatal]
  - Melaena [Fatal]
  - Rectal haemorrhage [Fatal]
  - Shock haemorrhagic [Fatal]
  - Gastrointestinal haemorrhage [Fatal]
  - Off label use [Unknown]
